FAERS Safety Report 6696374-1 (Version None)
Quarter: 2010Q2

REPORT INFORMATION
  Report Type: 
  Country: None (occurrence: None)
  Receive Date: 20100426
  Receipt Date: 20100414
  Transmission Date: 20101027
  Serious: No
  Sender: FDA-Public Use
  Company Number: US-JNJFOC-20100302296

PATIENT
  Sex: Female
  Weight: 77.11 kg

DRUGS (12)
  1. DURAGESIC-100 [Suspect]
     Indication: FIBROMYALGIA
     Route: 062
  2. DURAGESIC-100 [Suspect]
     Route: 062
  3. DURAGESIC-100 [Suspect]
     Indication: OSTEOARTHRITIS
     Route: 062
  4. DURAGESIC-100 [Suspect]
     Route: 062
  5. VICODIN [Concomitant]
     Indication: PAIN
     Route: 048
  6. NEXIUM [Concomitant]
     Indication: GASTROOESOPHAGEAL REFLUX DISEASE
     Route: 048
  7. ZOLOFT [Concomitant]
     Indication: BIPOLAR DISORDER
     Route: 048
  8. ATARAX [Concomitant]
     Indication: ANXIETY
     Route: 048
  9. NEURONTIN [Concomitant]
     Indication: AFFECTIVE DISORDER
     Route: 048
  10. DETROL LA [Concomitant]
     Indication: URINARY INCONTINENCE
     Route: 048
  11. DEPAKOTE [Concomitant]
     Indication: BIPOLAR DISORDER
     Route: 048
  12. AMBIEN [Concomitant]
     Indication: SLEEP DISORDER
     Route: 048

REACTIONS (1)
  - WRONG TECHNIQUE IN DRUG USAGE PROCESS [None]
